FAERS Safety Report 5662084-2 (Version None)
Quarter: 2008Q1

REPORT INFORMATION
  Report Type: 
  Country: None (occurrence: None)
  Receive Date: 20080212
  Receipt Date: 20071116
  Transmission Date: 20080703
  Serious: Yes (Hospitalization)
  Sender: FDA-Public Use
  Company Number: LUP-0189

PATIENT
  Age: 1 Year
  Sex: Female

DRUGS (1)
  1. SUPRAX [Suspect]
     Indication: OTITIS MEDIA
     Dosage: 240 MG (200 MG/5 ML) PO
     Route: 047
     Dates: start: 20071110, end: 20071112

REACTIONS (1)
  - CONVULSION [None]
